FAERS Safety Report 9270383 (Version 1)
Quarter: 2013Q2

REPORT INFORMATION
  Report Type: Spontaneous
  Country: US (occurrence: US)
  Receive Date: 20130503
  Receipt Date: 20130503
  Transmission Date: 20140414
  Serious: Yes (Hospitalization)
  Sender: FDA-Public Use
  Company Number: US-ELI_LILLY_AND_COMPANY-US201304007605

PATIENT
  Age: 65 Year
  Sex: Female

DRUGS (4)
  1. FORTEO [Suspect]
     Indication: OSTEOPOROSIS
     Dosage: 20 UG, QD
     Dates: start: 20120425
  2. VITAMIN D [Concomitant]
  3. CALCIUM [Concomitant]
  4. PRAVASTATIN                        /00880402/ [Concomitant]

REACTIONS (1)
  - Nephrolithiasis [Unknown]
